FAERS Safety Report 17757731 (Version 1)
Quarter: 2020Q2

REPORT INFORMATION
  Report Type: Spontaneous
  Country: US (occurrence: US)
  Receive Date: 20200507
  Receipt Date: 20200507
  Transmission Date: 20200714
  Serious: No
  Sender: FDA-Public Use
  Company Number: US-BIOMARINAP-US-2020-129658

PATIENT
  Age: 37 Year
  Sex: Female
  Weight: 68.5 kg

DRUGS (1)
  1. KUVAN [Suspect]
     Active Substance: SAPROPTERIN DIHYDROCHLORIDE
     Indication: PHENYLKETONURIA
     Dosage: 1300 MILLIGRAM, QD
     Route: 048
     Dates: start: 20200409

REACTIONS (5)
  - Haematemesis [Recovered/Resolved]
  - Nasal congestion [Recovered/Resolved]
  - Cough [Unknown]
  - Rhinorrhoea [Unknown]
  - Abdominal pain upper [Recovered/Resolved]

NARRATIVE: CASE EVENT DATE: 20200411
